FAERS Safety Report 12230613 (Version 1)
Quarter: 2016Q2

REPORT INFORMATION
  Report Type: Spontaneous
  Country: JP (occurrence: JP)
  Receive Date: 20160401
  Receipt Date: 20160401
  Transmission Date: 20160815
  Serious: Yes (Other)
  Sender: FDA-Public Use
  Company Number: JP-SUN PHARMACEUTICAL INDUSTRIES LTD-2016RR-112573

PATIENT
  Age: 64 Year
  Sex: Male
  Weight: 58 kg

DRUGS (16)
  1. OXALIPLATIN. [Suspect]
     Active Substance: OXALIPLATIN
     Indication: METASTASES TO LIVER
  2. FOLINIC ACID [Concomitant]
     Active Substance: LEUCOVORIN
     Indication: METASTASES TO LIVER
  3. FLUOROURACIL. [Concomitant]
     Active Substance: FLUOROURACIL
     Indication: METASTASES TO LIVER
  4. CETUXIMAB [Concomitant]
     Active Substance: CETUXIMAB
     Indication: METASTASES TO LYMPH NODES
  5. OXALIPLATIN. [Suspect]
     Active Substance: OXALIPLATIN
     Indication: RECTAL CANCER
     Dosage: 85 MG/M2, DAY 1
     Route: 065
  6. OXALIPLATIN. [Suspect]
     Active Substance: OXALIPLATIN
     Indication: LYMPHANGIOSIS CARCINOMATOSA
  7. FOLINIC ACID [Concomitant]
     Active Substance: LEUCOVORIN
     Indication: METASTASES TO LYMPH NODES
  8. FLUOROURACIL. [Concomitant]
     Active Substance: FLUOROURACIL
     Indication: RECTAL CANCER
     Dosage: 400 MG/M2 DAY 1
     Route: 040
  9. FOLINIC ACID [Concomitant]
     Active Substance: LEUCOVORIN
     Indication: RECTAL CANCER
  10. FOLINIC ACID [Concomitant]
     Active Substance: LEUCOVORIN
     Indication: LYMPHANGIOSIS CARCINOMATOSA
     Dosage: 200 MG/M2 DAY 1
     Route: 065
  11. CETUXIMAB [Concomitant]
     Active Substance: CETUXIMAB
     Indication: LYMPHANGIOSIS CARCINOMATOSA
  12. FLUOROURACIL. [Concomitant]
     Active Substance: FLUOROURACIL
     Indication: LYMPHANGIOSIS CARCINOMATOSA
     Dosage: 400 MG/M2 DAY 1-3
     Route: 042
  13. FLUOROURACIL. [Concomitant]
     Active Substance: FLUOROURACIL
     Indication: METASTASES TO LYMPH NODES
  14. OXALIPLATIN. [Suspect]
     Active Substance: OXALIPLATIN
     Indication: METASTASES TO LYMPH NODES
  15. CETUXIMAB [Concomitant]
     Active Substance: CETUXIMAB
     Indication: RECTAL CANCER
     Dosage: 250 MG/M2 DAY 1, 8, BUT IN THE FIRST DAY OF COURSE 1400 MG/M2
     Route: 065
  16. CETUXIMAB [Concomitant]
     Active Substance: CETUXIMAB
     Indication: METASTASES TO LIVER

REACTIONS (2)
  - Anaphylactic shock [Recovering/Resolving]
  - Blister [Unknown]
